FAERS Safety Report 10979437 (Version 3)
Quarter: 2015Q3

REPORT INFORMATION
  Report Type: Spontaneous
  Country: IT (occurrence: IT)
  Receive Date: 20150402
  Receipt Date: 20150812
  Transmission Date: 20151125
  Serious: Yes (Hospitalization)
  Sender: FDA-Public Use
  Company Number: IT-PFIZER INC-2015112904

PATIENT
  Age: 53 Year
  Sex: Male

DRUGS (4)
  1. PAROXETINE [Concomitant]
     Active Substance: PAROXETINE\PAROXETINE HYDROCHLORIDE
     Dosage: UNK
     Route: 048
  2. XANAX [Suspect]
     Active Substance: ALPRAZOLAM
     Dosage: UNK (RE-ADMINISTRATED)
     Route: 048
     Dates: start: 2015
  3. REMERON [Concomitant]
     Active Substance: MIRTAZAPINE
     Dosage: UNK
     Route: 048
  4. XANAX [Suspect]
     Active Substance: ALPRAZOLAM
     Dosage: 50 MG, TOTAL
     Route: 048
     Dates: start: 20150226, end: 20150226

REACTIONS (2)
  - Drug abuse [Recovered/Resolved]
  - Sopor [Recovered/Resolved]

NARRATIVE: CASE EVENT DATE: 20150226
